FAERS Safety Report 16382784 (Version 2)
Quarter: 2019Q2

REPORT INFORMATION
  Report Type: Spontaneous
  Country: US (occurrence: US)
  Receive Date: 20190603
  Receipt Date: 20190607
  Transmission Date: 20190711
  Serious: Yes (Other)
  Sender: FDA-Public Use
  Company Number: US-DRREDDYS-USA/USA/19/0110665

PATIENT
  Age: 6 Year
  Sex: Male

DRUGS (2)
  1. SIROLIMUS. [Suspect]
     Active Substance: SIROLIMUS
     Indication: ANGIOSARCOMA
     Dosage: TARGET TROUGH 8 TO 12 NG/ML
     Route: 048
  2. ZOLEDRONIC ACID. [Suspect]
     Active Substance: ZOLEDRONIC ACID
     Indication: ANGIOSARCOMA
     Dosage: MAX 4 MG/MONTH, PATIENT COMPLETED 27 ZA INFUSIONS
     Route: 051

REACTIONS (4)
  - Mucosal inflammation [Unknown]
  - Bone pain [Unknown]
  - Osteomyelitis [Recovered/Resolved]
  - Pyrexia [Unknown]
